FAERS Safety Report 16564603 (Version 4)
Quarter: 2020Q1

REPORT INFORMATION
  Report Type: Report from Study
  Country: JP (occurrence: JP)
  Receive Date: 20190712
  Receipt Date: 20200117
  Transmission Date: 20200409
  Serious: Yes (Other)
  Sender: FDA-Public Use
  Company Number: JP-BAUSCH-BL-2016-022479

PATIENT
  Age: 79 Year
  Sex: Male
  Weight: 41.7 kg

DRUGS (25)
  1. TIGASON [Concomitant]
     Indication: PRODUCT USED FOR UNKNOWN INDICATION
  2. SODIUM PICOSULFATE [Concomitant]
     Active Substance: SODIUM PICOSULFATE
     Indication: PRODUCT USED FOR UNKNOWN INDICATION
  3. ETIZOLAM [Concomitant]
     Active Substance: ETIZOLAM
     Indication: PRODUCT USED FOR UNKNOWN INDICATION
  4. TARGRETIN [Suspect]
     Active Substance: BEXAROTENE
     Route: 048
     Dates: start: 20170325, end: 20170831
  5. WHITE PETROLEUM AND AZUNOL [Concomitant]
     Indication: PRODUCT USED FOR UNKNOWN INDICATION
  6. BISOLVON [Concomitant]
     Active Substance: BROMHEXINE HYDROCHLORIDE
     Indication: PRODUCT USED FOR UNKNOWN INDICATION
  7. NAFTOPIDIL [Concomitant]
     Active Substance: NAFTOPIDIL
     Indication: PRODUCT USED FOR UNKNOWN INDICATION
  8. FUROSEMIDE. [Concomitant]
     Active Substance: FUROSEMIDE
     Indication: PRODUCT USED FOR UNKNOWN INDICATION
  9. BONALON [Concomitant]
     Active Substance: ALENDRONATE SODIUM
     Indication: PRODUCT USED FOR UNKNOWN INDICATION
  10. SENNOSIDE [Concomitant]
     Active Substance: SENNOSIDES
     Indication: PRODUCT USED FOR UNKNOWN INDICATION
  11. FAMOTIDINE. [Concomitant]
     Active Substance: FAMOTIDINE
     Indication: PRODUCT USED FOR UNKNOWN INDICATION
  12. ATARAX-P [Concomitant]
     Active Substance: HYDROXYZINE HYDROCHLORIDE
     Indication: PRODUCT USED FOR UNKNOWN INDICATION
  13. WHITE PETROLEUM AND AZUNOL [Concomitant]
     Indication: PRODUCT USED FOR UNKNOWN INDICATION
  14. BAKTAR [Concomitant]
     Active Substance: SULFAMETHOXAZOLE\TRIMETHOPRIM
     Indication: PRODUCT USED FOR UNKNOWN INDICATION
  15. TARGRETIN [Suspect]
     Active Substance: BEXAROTENE
     Indication: CUTANEOUS T-CELL LYMPHOMA
     Route: 048
     Dates: start: 20160829, end: 20160913
  16. TARGRETIN [Suspect]
     Active Substance: BEXAROTENE
     Route: 048
     Dates: start: 20170901
  17. MAGMITT [Concomitant]
     Active Substance: MAGNESIUM OXIDE
     Indication: PRODUCT USED FOR UNKNOWN INDICATION
  18. COLEPOLI R POWDER [Concomitant]
     Indication: PRODUCT USED FOR UNKNOWN INDICATION
  19. TARGRETIN [Suspect]
     Active Substance: BEXAROTENE
     Route: 048
     Dates: start: 20160927, end: 20170324
  20. CARBOCISTEINE [Concomitant]
     Active Substance: CARBOCYSTEINE
     Indication: PRODUCT USED FOR UNKNOWN INDICATION
  21. MIYA-BM [Concomitant]
     Active Substance: CLOSTRIDIUM BUTYRICUM SPORES STRAIN M-55
     Indication: PRODUCT USED FOR UNKNOWN INDICATION
  22. BARAMYCIN [Concomitant]
     Active Substance: BACITRACIN\NEOMYCIN SULFATE
     Indication: PRODUCT USED FOR UNKNOWN INDICATION
  23. DAIPHEN [Concomitant]
     Active Substance: SULFAMETHOXAZOLE\TRIMETHOPRIM
     Indication: PRODUCT USED FOR UNKNOWN INDICATION
  24. BROTIZOLAM [Concomitant]
     Active Substance: BROTIZOLAM
     Indication: PRODUCT USED FOR UNKNOWN INDICATION
  25. VEGAMOX [Concomitant]
     Active Substance: MOXIFLOXACIN HYDROCHLORIDE
     Indication: PRODUCT USED FOR UNKNOWN INDICATION
     Dosage: OPHTHALMIC SOLUTION

REACTIONS (8)
  - Dyslipidaemia [Not Recovered/Not Resolved]
  - Hyperlipidaemia [Unknown]
  - Purulence [Recovered/Resolved]
  - Dermatitis exfoliative [Recovered/Resolved]
  - Thyroid disorder [Recovered/Resolved]
  - Pyrexia [Recovered/Resolved]
  - Fungal infection [Recovered/Resolved]
  - Hypothyroidism [Unknown]

NARRATIVE: CASE EVENT DATE: 20160902
